FAERS Safety Report 4848252-8 (Version None)
Quarter: 2005Q4

REPORT INFORMATION
  Report Type: 
  Country: None (occurrence: None)
  Receive Date: 20051208
  Receipt Date: 20051202
  Transmission Date: 20060501
  Serious: Yes (Death, Hospitalization)
  Sender: FDA-Public Use
  Company Number: 2005AP06252

PATIENT
  Sex: Male

DRUGS (6)
  1. SEROQUEL [Suspect]
     Indication: SCHIZOPHRENIA
     Route: 048
     Dates: start: 20040101
  2. RISPERDAL [Concomitant]
     Route: 048
     Dates: start: 20040101
  3. CONTOMIN [Concomitant]
     Route: 048
     Dates: start: 20040101
  4. ARTANE [Concomitant]
     Route: 048
     Dates: start: 20040101
  5. FLIVAS [Concomitant]
     Route: 048
     Dates: start: 20050801
  6. BUP-4 [Concomitant]
     Route: 048
     Dates: start: 20050801

REACTIONS (4)
  - ANTICHOLINERGIC SYNDROME [None]
  - DEATH [None]
  - DRY MOUTH [None]
  - HYPERGLYCAEMIA [None]
